FAERS Safety Report 26190601 (Version 1)
Quarter: 2025Q4

REPORT INFORMATION
  Report Type: Spontaneous
  Country: US (occurrence: US)
  Receive Date: 20251223
  Receipt Date: 20251223
  Transmission Date: 20260117
  Serious: No
  Sender: ROCHE
  Company Number: US-ROCHE-10000463252

PATIENT
  Sex: Female

DRUGS (1)
  1. OCREVUS [Suspect]
     Active Substance: OCRELIZUMAB
     Indication: Multiple sclerosis
     Dosage: SINGLE DOSE VIAL
     Route: 042
     Dates: start: 202506

REACTIONS (3)
  - Fatigue [Unknown]
  - Physical deconditioning [Unknown]
  - Disturbance in attention [Unknown]
